FAERS Safety Report 8956196 (Version 3)
Quarter: 2012Q4

REPORT INFORMATION
  Report Type: 
  Country: JP (occurrence: JP)
  Receive Date: 20121210
  Receipt Date: 20121226
  Transmission Date: 20130627
  Serious: Yes (Hospitalization, Other)
  Sender: FDA-Public Use
  Company Number: PHHY2012JP112982

PATIENT

DRUGS (2)
  1. FEMARA [Suspect]
     Indication: BREAST CANCER STAGE II
     Dosage: 2.5 mg, Daily
  2. PREDNISOLONE [Concomitant]
     Dosage: 30 mg, UNK

REACTIONS (3)
  - Organising pneumonia [Recovering/Resolving]
  - Cough [Recovering/Resolving]
  - Dyspnoea [Recovering/Resolving]
